FAERS Safety Report 8168305-9 (Version None)
Quarter: 2012Q1

REPORT INFORMATION
  Report Type: 
  Country: None (occurrence: None)
  Receive Date: 20120227
  Receipt Date: 20120215
  Transmission Date: 20120608
  Serious: Yes (Hospitalization, Other)
  Sender: FDA-Public Use
  Company Number: US-MERCK-1201USA02445

PATIENT
  Age: 87 Year
  Sex: Male
  Weight: 69 kg

DRUGS (15)
  1. PREDNISONE [Concomitant]
     Route: 065
  2. MULTI-VITAMINS [Concomitant]
     Route: 065
  3. VITAMIN D (UNSPECIFIED) [Concomitant]
     Route: 065
  4. ZOCOR [Suspect]
     Route: 048
     Dates: end: 20080323
  5. DETROL LA [Concomitant]
     Route: 065
  6. ACETAMINOPHEN [Concomitant]
     Route: 065
  7. FOSAMAX [Suspect]
     Route: 048
  8. ZOCOR [Suspect]
     Route: 048
     Dates: start: 20080324
  9. PRILOSEC OTC [Concomitant]
     Route: 065
  10. ASPIRIN [Concomitant]
     Route: 065
  11. VITAMIN E [Concomitant]
     Route: 065
  12. CALCIUM (UNSPECIFIED) [Concomitant]
     Route: 065
  13. PROCRIT [Concomitant]
     Indication: ANAEMIA
     Route: 065
  14. DOXAZOSIN MESYLATE [Concomitant]
     Route: 065
  15. ACTONEL [Concomitant]
     Route: 065

REACTIONS (31)
  - AORTIC STENOSIS [None]
  - OSTEOPOROSIS [None]
  - THROMBOSIS [None]
  - BALANCE DISORDER [None]
  - FAECALOMA [None]
  - ANAEMIA [None]
  - COUGH [None]
  - HYDRONEPHROSIS [None]
  - HYPERLIPIDAEMIA [None]
  - TRANSIENT ISCHAEMIC ATTACK [None]
  - OEDEMA PERIPHERAL [None]
  - VENTRICULAR TACHYCARDIA [None]
  - CATARACT [None]
  - CORONARY ARTERY DISEASE [None]
  - AORTIC DISORDER [None]
  - RENAL FAILURE CHRONIC [None]
  - OSTEOARTHRITIS [None]
  - CARDIAC MURMUR [None]
  - IRON DEFICIENCY [None]
  - PELVI-URETERIC OBSTRUCTION [None]
  - SKIN CANCER [None]
  - PAIN IN EXTREMITY [None]
  - LEFT ATRIAL DILATATION [None]
  - PARAESTHESIA [None]
  - LEFT VENTRICULAR HYPERTROPHY [None]
  - HYPERTENSION [None]
  - GALLBLADDER DISORDER [None]
  - DIARRHOEA [None]
  - BLOOD CREATININE INCREASED [None]
  - LUMBAR VERTEBRAL FRACTURE [None]
  - POLYMYALGIA RHEUMATICA [None]
